FAERS Safety Report 10416921 (Version 1)
Quarter: 2014Q3

REPORT INFORMATION
  Report Type: Spontaneous
  Country: US (occurrence: US)
  Receive Date: 20140828
  Receipt Date: 20140828
  Transmission Date: 20150326
  Serious: No
  Sender: FDA-Public Use
  Company Number: US-009507513-1408USA014368

PATIENT
  Sex: Female

DRUGS (1)
  1. DULERA [Suspect]
     Active Substance: FORMOTEROL FUMARATE DIHYDRATE\MOMETASONE FUROATE
     Indication: CHRONIC OBSTRUCTIVE PULMONARY DISEASE
     Dosage: 2 PUFFS BY MOUTH TWICE A DAY
     Route: 055

REACTIONS (5)
  - Thirst [Unknown]
  - Product taste abnormal [Unknown]
  - Product quality issue [Unknown]
  - Drug dose omission [Unknown]
  - Dysgeusia [Unknown]
